FAERS Safety Report 18681901 (Version 1)
Quarter: 2020Q4

REPORT INFORMATION
  Report Type: Spontaneous
  Country: US (occurrence: US)
  Receive Date: 20201230
  Receipt Date: 20201230
  Transmission Date: 20210114
  Serious: No
  Sender: FDA-Public Use
  Company Number: US-APOTEX-2020AP023846

PATIENT
  Age: 79 Year

DRUGS (7)
  1. BUTORPHANOL [Suspect]
     Active Substance: BUTORPHANOL
     Indication: CHRONIC SPONTANEOUS URTICARIA
     Dosage: UNK UNK, PRN, 10 MG/ML, ONCE IN 4 HOUR
     Route: 045
  2. KENALOG [Suspect]
     Active Substance: TRIAMCINOLONE ACETONIDE
     Indication: CHRONIC SPONTANEOUS URTICARIA
     Dosage: 60 MILLIGRAM
     Route: 030
  3. MENTHOL. [Suspect]
     Active Substance: MENTHOL
     Indication: CHRONIC SPONTANEOUS URTICARIA
     Dosage: UNK
     Route: 065
  4. CLOBETASOL [Suspect]
     Active Substance: CLOBETASOL
     Indication: CHRONIC SPONTANEOUS URTICARIA
     Route: 065
  5. OMALIZUMAB. [Suspect]
     Active Substance: OMALIZUMAB
     Indication: CHRONIC SPONTANEOUS URTICARIA
     Dosage: UNK
     Route: 065
  6. SULFASALAZINE. [Suspect]
     Active Substance: SULFASALAZINE
     Indication: CHRONIC SPONTANEOUS URTICARIA
     Dosage: UNK
     Route: 065
  7. TRIAMCINOLONE [Suspect]
     Active Substance: TRIAMCINOLONE
     Indication: CHRONIC SPONTANEOUS URTICARIA
     Dosage: UNK
     Route: 065

REACTIONS (4)
  - Dizziness [Unknown]
  - Somnolence [Unknown]
  - Treatment failure [Unknown]
  - Off label use [Unknown]
